FAERS Safety Report 9285494 (Version 3)
Quarter: 2013Q3

REPORT INFORMATION
  Report Type: Spontaneous
  Country: US (occurrence: US)
  Receive Date: 20130513
  Receipt Date: 20130708
  Transmission Date: 20140515
  Serious: No
  Sender: FDA-Public Use
  Company Number: US-PFIZER INC-2013083692

PATIENT
  Age: 41 Year
  Sex: Female
  Weight: 86.2 kg

DRUGS (11)
  1. XALKORI [Suspect]
     Indication: NON-SMALL CELL LUNG CANCER
     Dosage: 250 MG, 2X/DAY
     Route: 048
     Dates: start: 201206
  2. XALKORI [Suspect]
     Indication: TRACHEAL CANCER
     Dosage: 250 MG, 2X/DAY
     Route: 048
     Dates: start: 201301
  3. XALKORI [Suspect]
     Indication: BRONCHIAL CARCINOMA
  4. XALKORI [Suspect]
     Indication: LUNG NEOPLASM MALIGNANT
  5. PROVENTIL [Concomitant]
     Dosage: UNK
  6. XANAX [Concomitant]
     Dosage: UNK
  7. XANAX [Concomitant]
     Dosage: UNK, AS NEEDED
  8. REGLAN [Concomitant]
     Indication: NAUSEA
     Dosage: UNK, AS NEEDED
  9. REGLAN [Concomitant]
     Indication: GASTROOESOPHAGEAL REFLUX DISEASE
     Dosage: UNK
  10. TOPAMAX [Concomitant]
     Dosage: UNK
  11. EFEXOR XR [Concomitant]
     Dosage: UNK

REACTIONS (7)
  - Drug administration error [Not Recovered/Not Resolved]
  - Eructation [Not Recovered/Not Resolved]
  - Nasal discomfort [Not Recovered/Not Resolved]
  - Throat irritation [Not Recovered/Not Resolved]
  - Blood calcium abnormal [Unknown]
  - Disease progression [Unknown]
  - Non-small cell lung cancer [Unknown]
